FAERS Safety Report 10778894 (Version 1)
Quarter: 2015Q1

REPORT INFORMATION
  Report Type: Spontaneous
  Country: US (occurrence: US)
  Receive Date: 20150210
  Receipt Date: 20150210
  Transmission Date: 20150721
  Serious: Yes (Other)
  Sender: FDA-Public Use
  Company Number: US-CIPLA LTD.-2015US00891

PATIENT

DRUGS (5)
  1. IRINOTECAN [Suspect]
     Active Substance: IRINOTECAN
     Indication: COLORECTAL CANCER METASTATIC
  2. VEMURAFENIB [Suspect]
     Active Substance: VEMURAFENIB
     Indication: COLORECTAL CANCER METASTATIC
     Dosage: 960 MG, BID
     Route: 048
  3. FLUOROPYRIMIDINE [Suspect]
     Active Substance: UNSPECIFIED INGREDIENT
     Indication: COLORECTAL CANCER METASTATIC
  4. OXALIPLATIN. [Suspect]
     Active Substance: OXALIPLATIN
     Indication: COLORECTAL CANCER METASTATIC
  5. PANITUMUMAB [Suspect]
     Active Substance: PANITUMUMAB
     Indication: COLORECTAL CANCER METASTATIC
     Dosage: 6MG/KG EVERY 14 DAYS
     Route: 042

REACTIONS (2)
  - Disease progression [Unknown]
  - Intestinal perforation [Unknown]
